FAERS Safety Report 14967436 (Version 1)
Quarter: 2018Q2

REPORT INFORMATION
  Report Type: Report from Study
  Country: None (occurrence: HU)
  Receive Date: 20180604
  Receipt Date: 20180604
  Transmission Date: 20180711
  Serious: Yes (Hospitalization)
  Sender: FDA-Public Use
  Company Number: HU-ABBVIE-18K-076-2342715-00

PATIENT
  Age: 71 Year
  Sex: Male

DRUGS (3)
  1. DUODOPA [Suspect]
     Active Substance: CARBIDOPA\LEVODOPA
     Indication: PRODUCT USED FOR UNKNOWN INDICATION
     Dosage: MORNING DOSE 9ML; CONTINUOUS DOSE 4.0ML/H;EXTRA DOSE 0.2ML
     Route: 050
     Dates: start: 20160224
  2. ASA PROTECT PHARMAVIT [Concomitant]
     Indication: CEREBRAL INFARCTION
     Route: 048
  3. VINPOCETIN [Concomitant]
     Indication: CEREBRAL INFARCTION
     Route: 048

REACTIONS (2)
  - Embedded device [Unknown]
  - Embedded device [Recovered/Resolved]

NARRATIVE: CASE EVENT DATE: 2018
